FAERS Safety Report 20739538 (Version 3)
Quarter: 2022Q3

REPORT INFORMATION
  Report Type: Other
  Country: ES (occurrence: ES)
  Receive Date: 20220422
  Receipt Date: 20220725
  Transmission Date: 20221027
  Serious: Yes (Hospitalization)
  Sender: FDA-Public Use
  Company Number: ES-JNJFOC-20220403638

PATIENT
  Age: 66 Year
  Sex: Male
  Weight: 75 kg

DRUGS (14)
  1. CYCLOPHOSPHAMIDE [Suspect]
     Active Substance: CYCLOPHOSPHAMIDE
     Indication: Product used for unknown indication
     Route: 065
  2. VINCRISTINE [Suspect]
     Active Substance: VINCRISTINE
     Indication: Product used for unknown indication
     Route: 065
  3. IMBRUVICA [Suspect]
     Active Substance: IBRUTINIB
     Indication: Chronic lymphocytic leukaemia
     Route: 065
     Dates: start: 20200318, end: 20200626
  4. RITUXIMAB [Suspect]
     Active Substance: RITUXIMAB
     Indication: Product used for unknown indication
     Route: 065
  5. PREDNISONE [Suspect]
     Active Substance: PREDNISONE
     Indication: Product used for unknown indication
     Route: 065
  6. FENOFIBRATE [Concomitant]
     Active Substance: FENOFIBRATE
  7. ONDANSETRON [Concomitant]
     Active Substance: ONDANSETRON
  8. CASPOFUNGINA [Concomitant]
  9. LACTULOSE [Concomitant]
     Active Substance: LACTULOSE
  10. IBIS [BILASTINE] [Concomitant]
  11. AMIKACIN SULFATE [Concomitant]
     Active Substance: AMIKACIN SULFATE
  12. EPOETIN ALFA [Concomitant]
     Active Substance: ERYTHROPOIETIN
  13. METAMIZOLE [Concomitant]
     Active Substance: METAMIZOLE
     Dates: start: 20190930
  14. DEXCHLORPHENIRAMINE [Concomitant]
     Active Substance: DEXCHLORPHENIRAMINE

REACTIONS (5)
  - Febrile neutropenia [Unknown]
  - General physical condition abnormal [Unknown]
  - Pancytopenia [Unknown]
  - Haemophagocytic lymphohistiocytosis [Unknown]
  - Hepatic encephalopathy [Unknown]
